FAERS Safety Report 7306150-4 (Version None)
Quarter: 2011Q1

REPORT INFORMATION
  Report Type: 
  Country: None (occurrence: None)
  Receive Date: 20110222
  Receipt Date: 20110218
  Transmission Date: 20110831
  Serious: Yes (Hospitalization, Other)
  Sender: FDA-Public Use
  Company Number: IE-ABBOTT-11P-229-0702458-00

PATIENT
  Sex: Female

DRUGS (43)
  1. SODIUM CITRATE [Suspect]
     Indication: PRODUCT USED FOR UNKNOWN INDICATION
  2. WATER FOR INJECTION [Suspect]
     Indication: PRODUCT USED FOR UNKNOWN INDICATION
  3. MAGNESIUM STEARATE [Concomitant]
     Indication: PRODUCT USED FOR UNKNOWN INDICATION
  4. SILICON DIOXIDE [Concomitant]
     Indication: PRODUCT USED FOR UNKNOWN INDICATION
  5. SODIUM STARCH GLYCOLLATE [Concomitant]
     Indication: PRODUCT USED FOR UNKNOWN INDICATION
  6. DISODIUM PHOSPHATE DIHYDRATE [Suspect]
     Indication: PRODUCT USED FOR UNKNOWN INDICATION
  7. DELTACORTRIL ENTERIC [Concomitant]
     Indication: PRODUCT USED FOR UNKNOWN INDICATION
     Route: 048
     Dates: start: 20100603
  8. PREDNISOLONE [Concomitant]
     Indication: PRODUCT USED FOR UNKNOWN INDICATION
  9. PURIFIED TALC [Concomitant]
     Indication: PRODUCT USED FOR UNKNOWN INDICATION
  10. COLLOIDAL [Concomitant]
     Indication: PRODUCT USED FOR UNKNOWN INDICATION
  11. MANNITOL [Suspect]
     Indication: PRODUCT USED FOR UNKNOWN INDICATION
  12. POLYSORBATE 80 [Suspect]
     Indication: PRODUCT USED FOR UNKNOWN INDICATION
  13. BEESWAX WHITE, CALCIUM CARBONATE, CARMINE, CARNAUBA WAX (E903) [Concomitant]
     Indication: PRODUCT USED FOR UNKNOWN INDICATION
  14. INDIGO CARMINE ALUMINIUM LAKE FD+C BLUE NO.2 (E132) [Concomitant]
     Indication: PRODUCT USED FOR UNKNOWN INDICATION
  15. POLYSORBATE 20 [Concomitant]
     Indication: PRODUCT USED FOR UNKNOWN INDICATION
  16. POLYVINYL ACETATE PHTHALATE [Concomitant]
     Indication: PRODUCT USED FOR UNKNOWN INDICATION
  17. SODIUM CHLORIDE [Suspect]
     Indication: PRODUCT USED FOR UNKNOWN INDICATION
  18. METHYLCELLULOSE [Concomitant]
     Indication: PRODUCT USED FOR UNKNOWN INDICATION
  19. SORBIC ACID [Concomitant]
     Indication: PRODUCT USED FOR UNKNOWN INDICATION
  20. AMLODIPINE BESYLATE [Concomitant]
     Indication: PRODUCT USED FOR UNKNOWN INDICATION
  21. CELLULOSE MICROCRYSTALLINE [Concomitant]
     Indication: PRODUCT USED FOR UNKNOWN INDICATION
  22. MAIZE STARCH [Concomitant]
     Indication: PRODUCT USED FOR UNKNOWN INDICATION
  23. SODIUM BICARBONATE [Concomitant]
     Indication: PRODUCT USED FOR UNKNOWN INDICATION
  24. SODIUM CARBOXYLMETHYL CELLULOSE [Concomitant]
     Indication: PRODUCT USED FOR UNKNOWN INDICATION
  25. TRIETHYL CITRATE [Concomitant]
     Indication: PRODUCT USED FOR UNKNOWN INDICATION
  26. MACROGOL 4000 [Concomitant]
     Indication: PRODUCT USED FOR UNKNOWN INDICATION
  27. STEARIC ACID [Concomitant]
     Indication: PRODUCT USED FOR UNKNOWN INDICATION
  28. TITANIUM DIOXIDE [Concomitant]
     Indication: PRODUCT USED FOR UNKNOWN INDICATION
  29. CALCIUM PHOSPHATE DIBASIC [Concomitant]
     Indication: PRODUCT USED FOR UNKNOWN INDICATION
  30. HUMIRA [Suspect]
     Indication: POLYARTHRITIS
     Route: 058
     Dates: start: 20080101
  31. HUMIRA [Suspect]
     Indication: COLITIS ULCERATIVE
     Route: 058
     Dates: start: 20100810, end: 20101101
  32. SODIUM HYDROXIDE [Suspect]
     Indication: PRODUCT USED FOR UNKNOWN INDICATION
  33. LACTOSE ANHYDROUS [Concomitant]
     Indication: PRODUCT USED FOR UNKNOWN INDICATION
  34. OPAGLOS [Concomitant]
     Indication: PRODUCT USED FOR UNKNOWN INDICATION
  35. SODIUM ALGINATE [Concomitant]
     Indication: PRODUCT USED FOR UNKNOWN INDICATION
  36. XANTHAN GUM (E145) [Concomitant]
     Indication: PRODUCT USED FOR UNKNOWN INDICATION
  37. MAGNESIUM STEARATE [Concomitant]
  38. CITRIC ACID MONOHYDRATE [Suspect]
     Indication: PRODUCT USED FOR UNKNOWN INDICATION
  39. SODIUM DIHYDROGEN PHOSPHATE DIHYDRATE [Suspect]
     Indication: PRODUCT USED FOR UNKNOWN INDICATION
  40. LACTOSE MONOHYDRATE PH.EUR [Concomitant]
     Indication: PRODUCT USED FOR UNKNOWN INDICATION
  41. LECITHIN [Concomitant]
     Indication: PRODUCT USED FOR UNKNOWN INDICATION
  42. POLYVINYL ALCOHOL [Concomitant]
     Indication: PRODUCT USED FOR UNKNOWN INDICATION
  43. ISTIN [Concomitant]
     Indication: PRODUCT USED FOR UNKNOWN INDICATION
     Route: 048
     Dates: start: 20100620

REACTIONS (6)
  - VOMITING [None]
  - HEPATIC NEOPLASM MALIGNANT [None]
  - GAMMA-GLUTAMYLTRANSFERASE ABNORMAL [None]
  - NAUSEA [None]
  - ASCITES [None]
  - GASTROINTESTINAL CANCER METASTATIC [None]
